FAERS Safety Report 4362237-X (Version None)
Quarter: 2004Q2

REPORT INFORMATION
  Report Type: 
  Country: None (occurrence: None)
  Receive Date: 20040518
  Receipt Date: 20040510
  Transmission Date: 20050107
  Serious: Yes (Other)
  Sender: FDA-Public Use
  Company Number: 2004212758US

PATIENT
  Sex: Female

DRUGS (1)
  1. MYCOBUTIN [Suspect]
     Indication: TUBERCULOSIS
     Dates: start: 20040422

REACTIONS (5)
  - ARRHYTHMIA [None]
  - DIZZINESS [None]
  - INSOMNIA [None]
  - MALAISE [None]
  - NAUSEA [None]
